FAERS Safety Report 9606950 (Version 9)
Quarter: 2017Q3

REPORT INFORMATION
  Report Type: Report from Study
  Country: CA (occurrence: CA)
  Receive Date: 20131008
  Receipt Date: 20170825
  Transmission Date: 20171128
  Serious: Yes (Other)
  Sender: FDA-Public Use
  Company Number: CA-ROCHE-1166088

PATIENT
  Age: 73 Year
  Sex: Male
  Weight: 65 kg

DRUGS (8)
  1. ACTEMRA [Suspect]
     Active Substance: TOCILIZUMAB
     Route: 042
     Dates: start: 20141022
  2. AVAPRO [Concomitant]
     Active Substance: IRBESARTAN
  3. ACTEMRA [Suspect]
     Active Substance: TOCILIZUMAB
     Indication: RHEUMATOID ARTHRITIS
     Dosage: LAST DOSE: 10/FEB/2016
     Route: 042
     Dates: start: 20110428
  4. ACTEMRA [Suspect]
     Active Substance: TOCILIZUMAB
     Dosage: HALF DOSE
     Route: 042
     Dates: start: 20121016
  5. ACTEMRA [Suspect]
     Active Substance: TOCILIZUMAB
     Route: 042
     Dates: start: 20141217
  6. NEXIUM [Concomitant]
     Active Substance: ESOMEPRAZOLE MAGNESIUM
  7. ACTEMRA [Suspect]
     Active Substance: TOCILIZUMAB
     Route: 042
     Dates: start: 20130402
  8. ACTEMRA [Suspect]
     Active Substance: TOCILIZUMAB
     Route: 042
     Dates: start: 20150729

REACTIONS (11)
  - Inguinal hernia [Unknown]
  - Cerebrovascular accident [Not Recovered/Not Resolved]
  - Nasal congestion [Recovering/Resolving]
  - Gallbladder disorder [Unknown]
  - Headache [Recovering/Resolving]
  - Nasal congestion [Not Recovered/Not Resolved]
  - Weight increased [Unknown]
  - Productive cough [Not Recovered/Not Resolved]
  - Arthralgia [Unknown]
  - Felty^s syndrome [Unknown]
  - Platelet count decreased [Recovered/Resolved]

NARRATIVE: CASE EVENT DATE: 2012
